FAERS Safety Report 17296323 (Version 2)
Quarter: 2020Q2

REPORT INFORMATION
  Report Type: Report from Study
  Country: None (occurrence: US)
  Receive Date: 20200122
  Receipt Date: 20200422
  Transmission Date: 20200713
  Serious: Yes (Other)
  Sender: FDA-Public Use
  Company Number: US-ABBVIE-20K-163-3241907-00

PATIENT
  Sex: Female

DRUGS (1)
  1. HUMIRA [Suspect]
     Active Substance: ADALIMUMAB
     Indication: JUVENILE IDIOPATHIC ARTHRITIS
     Route: 058
     Dates: start: 20190722

REACTIONS (6)
  - Retinal scar [Unknown]
  - Nausea [Unknown]
  - Uveitis [Unknown]
  - Fatigue [Unknown]
  - Blindness unilateral [Not Recovered/Not Resolved]
  - Visual impairment [Recovering/Resolving]
